FAERS Safety Report 8284549-X (Version None)
Quarter: 2012Q2

REPORT INFORMATION
  Report Type: 
  Country: None (occurrence: None)
  Receive Date: 20120413
  Receipt Date: 20120124
  Transmission Date: 20120825
  Serious: No
  Sender: FDA-Public Use
  Company Number: US-ASTRAZENECA-2010SE48746

PATIENT
  Age: 66 Year
  Sex: Female

DRUGS (3)
  1. TOPROL-XL [Suspect]
     Route: 048
  2. CRESTOR [Suspect]
     Route: 048
  3. NEXIUM [Suspect]
     Route: 048

REACTIONS (10)
  - OESOPHAGEAL ULCER [None]
  - ARTHROPATHY [None]
  - NASOPHARYNGITIS [None]
  - DRUG DOSE OMISSION [None]
  - PNEUMONIA [None]
  - PAIN [None]
  - COUGH [None]
  - BARRETT'S OESOPHAGUS [None]
  - MALAISE [None]
  - HEADACHE [None]
